FAERS Safety Report 26063783 (Version 1)
Quarter: 2025Q4

REPORT INFORMATION
  Report Type: Spontaneous
  Country: GB (occurrence: GB)
  Receive Date: 20251119
  Receipt Date: 20251119
  Transmission Date: 20260118
  Serious: Yes (Other)
  Sender: MICRO LABS LIMITED
  Company Number: GB-MHRA-TPP27481677C1455479YC1762764938556

PATIENT
  Age: 60 Year
  Sex: Female
  Weight: 73 kg

DRUGS (4)
  1. LOSARTAN [Suspect]
     Active Substance: LOSARTAN
     Indication: Ill-defined disorder
     Dates: start: 20251009
  2. BISOPROLOL [Concomitant]
     Active Substance: BISOPROLOL
     Indication: Ill-defined disorder
     Dosage: TAKE ONE TABLET ONCE A DAY
     Dates: start: 20250715
  3. BUDESONIDE\FORMOTEROL [Concomitant]
     Active Substance: BUDESONIDE\FORMOTEROL
     Indication: Ill-defined disorder
     Dosage: INHALE ONE DOSE TWICE A DAY, 1 EXTRA PUFF AS RE...
     Route: 055
     Dates: start: 20250715
  4. RAMIPRIL [Concomitant]
     Active Substance: RAMIPRIL
     Indication: Ill-defined disorder
     Dosage: TAKE ONE CAPSULE ONCE A DAY
     Dates: start: 20250715, end: 20251009

REACTIONS (1)
  - Diarrhoea [Recovered/Resolved]
